FAERS Safety Report 12611927 (Version 2)
Quarter: 2016Q3

REPORT INFORMATION
  Report Type: Spontaneous
  Country: US (occurrence: US)
  Receive Date: 20160801
  Receipt Date: 20160810
  Transmission Date: 20161109
  Serious: Yes (Hospitalization, Other)
  Sender: FDA-Public Use
  Company Number: US-JNJFOC-20160721283

PATIENT
  Age: 44 Year
  Sex: Female
  Weight: 117.94 kg

DRUGS (1)
  1. XARELTO [Suspect]
     Active Substance: RIVAROXABAN
     Indication: DEEP VEIN THROMBOSIS
     Route: 048
     Dates: start: 201505, end: 201505

REACTIONS (2)
  - Thrombosis [Unknown]
  - Hospitalisation [Unknown]

NARRATIVE: CASE EVENT DATE: 201505
